FAERS Safety Report 5488521-4 (Version None)
Quarter: 2007Q4

REPORT INFORMATION
  Report Type: 
  Country: None (occurrence: None)
  Receive Date: 20071017
  Receipt Date: 20071004
  Transmission Date: 20080405
  Serious: Yes (Other)
  Sender: FDA-Public Use
  Company Number: US-ELI_LILLY_AND_COMPANY-US200710001550

PATIENT
  Age: 48 Year
  Sex: Female
  Weight: 79.365 kg

DRUGS (4)
  1. CYMBALTA [Suspect]
     Indication: FIBROMYALGIA
     Dosage: 30 MG, DAILY (1/D)
     Dates: start: 20070629, end: 20070629
  2. AMITRIPTYLINE HCL [Concomitant]
  3. THYROID TAB [Concomitant]
  4. ACIPHEX [Concomitant]

REACTIONS (5)
  - ABNORMAL SENSATION IN EYE [None]
  - EYE PRURITUS [None]
  - HOLMES-ADIE PUPIL [None]
  - INSOMNIA [None]
  - OCULAR HYPERAEMIA [None]
